FAERS Safety Report 10706792 (Version 3)
Quarter: 2015Q1

REPORT INFORMATION
  Report Type: Spontaneous
  Country: US (occurrence: US)
  Receive Date: 20150113
  Receipt Date: 20150303
  Transmission Date: 20150721
  Serious: Yes (Other)
  Sender: FDA-Public Use
  Company Number: US-AMGEN-USASP2015001305

PATIENT
  Age: 71 Year
  Sex: Male
  Weight: 96.16 kg

DRUGS (2)
  1. ENBREL [Suspect]
     Active Substance: ETANERCEPT
     Indication: PSORIASIS
     Dosage: 50 MG, QWK
     Route: 058
     Dates: start: 2013
  2. TRIAMCINOLONE [Concomitant]
     Active Substance: TRIAMCINOLONE
     Dosage: 0.1 %, BID, APPLY TO AA BID

REACTIONS (6)
  - Drug administration error [Unknown]
  - Liver disorder [Unknown]
  - Renal disorder [Unknown]
  - Psoriasis [Not Recovered/Not Resolved]
  - Injection site pain [Unknown]
  - Chronic kidney disease [Unknown]

NARRATIVE: CASE EVENT DATE: 201411
